FAERS Safety Report 26126385 (Version 1)
Quarter: 2025Q4

REPORT INFORMATION
  Report Type: Spontaneous
  Country: CN (occurrence: CN)
  Receive Date: 20251205
  Receipt Date: 20251205
  Transmission Date: 20260118
  Serious: Yes (Other)
  Sender: BAXTER
  Company Number: CN-BAXTER-2025BAX025360

PATIENT
  Age: 82 Year
  Sex: Female
  Weight: 52 kg

DRUGS (4)
  1. CYCLOPHOSPHAMIDE [Suspect]
     Active Substance: CYCLOPHOSPHAMIDE
     Indication: Diffuse large B-cell lymphoma stage III
     Dosage: SIX CYCLES OF MITOXANTRONE HYDROCHLORIDE LIPOSOME-BASED CHEMOTHERAPY (VINCRISTINE AND CYCLOPHOSPHAMI
     Route: 065
     Dates: start: 20230401
  2. MITOXANTRONE [Suspect]
     Active Substance: MITOXANTRONE HYDROCHLORIDE
     Indication: Diffuse large B-cell lymphoma stage III
     Dosage: SIX CYCLES OF MITOXANTRONE HYDROCHLORIDE LIPOSOME-BASED CHEMOTHERAPY (VINCRISTINE AND CYCLOPHOSPHAMI
     Route: 065
     Dates: start: 20230401
  3. RITUXIMAB [Suspect]
     Active Substance: RITUXIMAB
     Indication: Diffuse large B-cell lymphoma stage III
     Dosage: SIX CYCLES OF MITOXANTRONE HYDROCHLORIDE LIPOSOME-BASED CHEMOTHERAPY (VINCRISTINE AND CYCLOPHOSPHAMI
     Route: 065
     Dates: start: 20230401
  4. VINCRISTINE [Suspect]
     Active Substance: VINCRISTINE
     Indication: Diffuse large B-cell lymphoma stage III
     Dosage: SIX CYCLES OF MITOXANTRONE HYDROCHLORIDE LIPOSOME-BASED CHEMOTHERAPY (VINCRISTINE AND CYCLOPHOSPHAMI
     Route: 065
     Dates: start: 20230401

REACTIONS (5)
  - Mitral valve incompetence [Unknown]
  - Tricuspid valve incompetence [Unknown]
  - Myelosuppression [Unknown]
  - Aortic valve calcification [Unknown]
  - Left ventricular dysfunction [Unknown]
